FAERS Safety Report 7288697-2 (Version None)
Quarter: 2011Q1

REPORT INFORMATION
  Report Type: 
  Country: None (occurrence: None)
  Receive Date: 20110101
  Receipt Date: 20110117
  Transmission Date: 20110831
  Serious: Yes (Death)
  Sender: FDA-Public Use
  Company Number: 813209

PATIENT
  Age: 78 Year
  Sex: Female

DRUGS (7)
  1. DEXAMETHASONE [Concomitant]
  2. MAXOLON [Concomitant]
  3. LACTULOSE [Concomitant]
  4. (COLOXYL WITH SENNA) [Concomitant]
  5. VINORELBINE TARTRATE [Suspect]
     Indication: LUNG NEOPLASM MALIGNANT
     Dosage: (INTRAVENOUS (NOT OTHERWISE SPECIFIED)
     Route: 042
  6. VINORELBINE TARTRATE [Suspect]
     Indication: BRONCHIAL CARCINOMA
     Dosage: (INTRAVENOUS (NOT OTHERWISE SPECIFIED)
     Route: 042
  7. (TROPISETRON HYDROCHLORIDE) [Concomitant]

REACTIONS (7)
  - FEBRILE NEUTROPENIA [None]
  - PNEUMONIA [None]
  - NEOPLASM MALIGNANT [None]
  - LUNG INFECTION [None]
  - BRONCHIAL CARCINOMA [None]
  - PULMONARY OEDEMA [None]
  - LUNG NEOPLASM MALIGNANT [None]
